FAERS Safety Report 5497139-9 (Version None)
Quarter: 2007Q4

REPORT INFORMATION
  Report Type: 
  Country: None (occurrence: None)
  Receive Date: 20071025
  Receipt Date: 20071022
  Transmission Date: 20080405
  Serious: Yes (Hospitalization)
  Sender: FDA-Public Use
  Company Number: GB-BAYER-200711109BNE

PATIENT
  Age: 38 Year
  Sex: Male

DRUGS (1)
  1. ASPIRIN [Suspect]
     Indication: BACK PAIN
     Route: 048
     Dates: start: 20040701, end: 20040701

REACTIONS (9)
  - ABNORMAL SENSATION IN EYE [None]
  - ANGIOEDEMA [None]
  - ANXIETY [None]
  - CONJUNCTIVAL OEDEMA [None]
  - EYE PAIN [None]
  - EYE SWELLING [None]
  - LACRIMATION INCREASED [None]
  - PERIORBITAL OEDEMA [None]
  - VISION BLURRED [None]
